FAERS Safety Report 6976156-3 (Version None)
Quarter: 2010Q3

REPORT INFORMATION
  Report Type: 
  Country: None (occurrence: None)
  Receive Date: 20100910
  Receipt Date: 20090420
  Transmission Date: 20110219
  Serious: No
  Sender: FDA-Public Use
  Company Number: US-WYE-H09031009

PATIENT
  Sex: Female
  Weight: 76.73 kg

DRUGS (9)
  1. PRISTIQ [Suspect]
     Indication: ANXIETY
     Route: 048
     Dates: start: 20090410
  2. PRISTIQ [Suspect]
     Indication: DEPRESSION
  3. POTASSIUM [Concomitant]
  4. NITROFURANTOIN [Concomitant]
  5. LORAZEPAM [Concomitant]
  6. PROVIGIL [Concomitant]
  7. ANTIVERT [Concomitant]
  8. ATENOLOL [Concomitant]
  9. FOLIC ACID [Concomitant]

REACTIONS (7)
  - ANXIETY [None]
  - CONDITION AGGRAVATED [None]
  - CRYING [None]
  - HEADACHE [None]
  - HYPERHIDROSIS [None]
  - NAUSEA [None]
  - PRURITUS [None]
